FAERS Safety Report 5961254-3 (Version None)
Quarter: 2008Q4

REPORT INFORMATION
  Report Type: 
  Country: None (occurrence: None)
  Receive Date: 20081121
  Receipt Date: 20081113
  Transmission Date: 20090506
  Serious: Yes (Other)
  Sender: FDA-Public Use
  Company Number: US-BAYER-200835349NA

PATIENT
  Age: 26 Year
  Sex: Female
  Weight: 123 kg

DRUGS (9)
  1. MIRENA [Suspect]
     Indication: CONTRACEPTION
     Route: 015
     Dates: start: 20080813, end: 20080923
  2. FLAGYL [Concomitant]
     Indication: TRICHOMONIASIS
     Dosage: AS USED: 2 G
     Dates: start: 20080819
  3. LEXAPRO [Concomitant]
     Dosage: TOTAL DAILY DOSE: 20 MG
     Route: 048
  4. SEROQUEL [Concomitant]
     Dosage: TOTAL DAILY DOSE: 25 MG
     Route: 048
  5. AMBIEN [Concomitant]
     Dosage: TOTAL DAILY DOSE: 12.5 MG
     Route: 048
  6. ZYRTEC [Concomitant]
     Dosage: TOTAL DAILY DOSE: 10 MG
     Route: 048
  7. ALBUTEROL [Concomitant]
     Dosage: TOTAL DAILY DOSE: 2 PUFF
     Route: 055
  8. ALA-CORT [Concomitant]
  9. NASONEX [Concomitant]
     Dosage: TOTAL DAILY DOSE: 2 PUFF
     Route: 045

REACTIONS (5)
  - PELVIC INFLAMMATORY DISEASE [None]
  - PELVIC PAIN [None]
  - TRICHOMONIASIS [None]
  - VAGINAL DISCHARGE [None]
  - VAGINAL ODOUR [None]
